FAERS Safety Report 21935305 (Version 1)
Quarter: 2023Q1

REPORT INFORMATION
  Report Type: Spontaneous
  Country: ES (occurrence: ES)
  Receive Date: 20230201
  Receipt Date: 20230201
  Transmission Date: 20230417
  Serious: Yes (Hospitalization)
  Sender: FDA-Public Use
  Company Number: None

PATIENT

DRUGS (4)
  1. SOTROVIMAB [Suspect]
     Active Substance: SOTROVIMAB
     Indication: Post-acute COVID-19 syndrome
     Dosage: 1000 MG, IN TOTAL
     Route: 042
     Dates: start: 20221210, end: 20221210
  2. MOLNUPIRAVIR [Suspect]
     Active Substance: MOLNUPIRAVIR
     Indication: Post-acute COVID-19 syndrome
     Dosage: 800 MG EVERY 12H
     Route: 048
     Dates: start: 20221210, end: 20221215
  3. ERYTHROPOIETIN [Concomitant]
     Active Substance: ERYTHROPOIETIN
     Indication: Anaemia
     Dosage: 30000 IU, WE; TUESDAY
     Route: 058
     Dates: start: 20200115
  4. IMBRUVICA [Concomitant]
     Active Substance: IBRUTINIB
     Indication: Waldenstrom^s macroglobulinaemia
     Dosage: 280 MG EVERY 24H
     Route: 048
     Dates: start: 20210923

REACTIONS (2)
  - Condition aggravated [Recovered/Resolved]
  - Anaemia [Recovered/Resolved]

NARRATIVE: CASE EVENT DATE: 20221213
